FAERS Safety Report 6906825-2 (Version None)
Quarter: 2010Q3

REPORT INFORMATION
  Report Type: 
  Country: None (occurrence: None)
  Receive Date: 20100804
  Receipt Date: 20100727
  Transmission Date: 20110219
  Serious: Yes (Death, Other)
  Sender: FDA-Public Use
  Company Number: US-ELI_LILLY_AND_COMPANY-US200906004715

PATIENT

DRUGS (2)
  1. BYETTA [Suspect]
     Dosage: UNK, UNK
  2. INSULIN [Concomitant]

REACTIONS (4)
  - DEATH [None]
  - OFF LABEL USE [None]
  - PANCREATIC CARCINOMA [None]
  - RENAL INJURY [None]
